FAERS Safety Report 8553352-5 (Version None)
Quarter: 2012Q3

REPORT INFORMATION
  Report Type: 
  Country: None (occurrence: None)
  Receive Date: 20120731
  Receipt Date: 20120727
  Transmission Date: 20120928
  Serious: Yes (Life-Threatening)
  Sender: FDA-Public Use
  Company Number: NL-ASTRAZENECA-2012SE53480

PATIENT
  Age: 36 Year
  Sex: Female
  Weight: 60 kg

DRUGS (3)
  1. OTHER DRUGS [Concomitant]
     Indication: OBSTRUCTIVE AIRWAYS DISORDER
  2. OTHER DRUGS [Concomitant]
     Indication: ASTHMA
  3. SYMBICORT [Suspect]
     Indication: ASTHMA
     Dosage: 2D2I, 1 DF, TWO TIMES A DAY
     Route: 055
     Dates: start: 20120601

REACTIONS (1)
  - COGNITIVE DISORDER [None]
